FAERS Safety Report 10869383 (Version 1)
Quarter: 2015Q1

REPORT INFORMATION
  Report Type: Spontaneous
  Country: DK (occurrence: DK)
  Receive Date: 20150226
  Receipt Date: 20150226
  Transmission Date: 20150721
  Serious: Yes (Other)
  Sender: FDA-Public Use
  Company Number: DK-CIPLA LTD.-2015DK01478

PATIENT

DRUGS (9)
  1. 5-FLUOROURACIL [Suspect]
     Active Substance: FLUOROURACIL
     Indication: COLORECTAL CANCER
     Dosage: 500 MG/M2 BOLUS,REPEATED EVERY 2 WEEKS
     Route: 042
  2. FOLINIC ACID [Suspect]
     Active Substance: LEUCOVORIN
     Indication: COLORECTAL CANCER
     Dosage: 60 MG/M2  BOLUS,REPEATED EVERY 2 WEEKS
     Route: 042
  3. MITOMYCIN. [Concomitant]
     Active Substance: MITOMYCIN
  4. IRINOTECAN [Suspect]
     Active Substance: IRINOTECAN
     Indication: COLORECTAL CANCER
     Dosage: 180-210 MG/M2, 30 MIN INFUSION ON DAY 1, REPEATED EVERY 2 WEEKS
     Route: 042
  5. OXALIPLATIN. [Suspect]
     Active Substance: OXALIPLATIN
     Indication: COLORECTAL CANCER
     Dosage: 130 MG/M2 ON DAY 1, 30 MIN INFUSION IN 250 ML OF 5% DEXTROSE, REPEATED EVERY 3 WEEKS
  6. CAPECITABINE. [Suspect]
     Active Substance: CAPECITABINE
     Indication: COLORECTAL CANCER
     Dosage: 1 000 MG/M2 B.I.D. AS AN INTERMITTENT REGIMEN IN 3-WEEK CYCLES
     Route: 048
  7. URACIL TEGAFUR [Concomitant]
  8. GRANISETRONE [Concomitant]
     Indication: PROPHYLAXIS
     Dosage: 1 MG
     Route: 042
  9. PREDNISOLONE. [Concomitant]
     Active Substance: PREDNISOLONE
     Indication: PROPHYLAXIS
     Dosage: 50 MG
     Route: 048

REACTIONS (2)
  - Drug resistance [Unknown]
  - Dysaesthesia pharynx [Unknown]
